FAERS Safety Report 13905076 (Version 1)
Quarter: 2017Q3

REPORT INFORMATION
  Report Type: Spontaneous
  Country: US (occurrence: None)
  Receive Date: 20170824
  Receipt Date: 20170824
  Transmission Date: 20171127
  Serious: Yes (Other)
  Sender: FDA-Public Use
  Company Number: None

PATIENT
  Age: 62 Year
  Sex: Female

DRUGS (16)
  1. AMPYRA [Suspect]
     Active Substance: DALFAMPRIDINE
     Indication: MULTIPLE SCLEROSIS
     Route: 048
     Dates: start: 201106
  2. CALTRATE WITH VITAMIN D [Concomitant]
     Active Substance: CALCIUM CARBONATE\CHOLECALCIFEROL
  3. METHYLPHENIDATE. [Concomitant]
     Active Substance: METHYLPHENIDATE
  4. FAMOTIDINE. [Concomitant]
     Active Substance: FAMOTIDINE
  5. COENZYME Q10 [Concomitant]
     Active Substance: UBIDECARENONE
  6. FENTANYL. [Concomitant]
     Active Substance: FENTANYL
  7. CITALOPRAM [Concomitant]
     Active Substance: CITALOPRAM HYDROBROMIDE
  8. MIRALAX [Concomitant]
     Active Substance: POLYETHYLENE GLYCOL 3350
  9. MVI [Concomitant]
     Active Substance: VITAMINS
  10. DIAZEPAM. [Concomitant]
     Active Substance: DIAZEPAM
  11. BACLOFEN. [Concomitant]
     Active Substance: BACLOFEN
  12. FLAVOXATE [Concomitant]
     Active Substance: FLAVOXATE
  13. ASPIRIN. [Concomitant]
     Active Substance: ASPIRIN
  14. VIT B COMPLEX [Concomitant]
  15. GLATOPA [Concomitant]
     Active Substance: GLATIRAMER ACETATE
  16. HYDROCODONE BITARTRATE AND ACETAMINOPHEN [Concomitant]
     Active Substance: ACETAMINOPHEN\HYDROCODONE BITARTRATE

REACTIONS (8)
  - Nausea [None]
  - Pyrexia [None]
  - Vomiting [None]
  - Flank pain [None]
  - Chills [None]
  - Pollakiuria [None]
  - Pain [None]
  - Dysuria [None]

NARRATIVE: CASE EVENT DATE: 20170728
